FAERS Safety Report 8534467-4 (Version None)
Quarter: 2012Q3

REPORT INFORMATION
  Report Type: 
  Country: None (occurrence: None)
  Receive Date: 20120724
  Receipt Date: 20120716
  Transmission Date: 20120928
  Serious: Yes (Hospitalization, Disabling)
  Sender: FDA-Public Use
  Company Number: DE-ROCHE-1086025

PATIENT
  Sex: Female
  Weight: 45.037 kg

DRUGS (8)
  1. RANIBIZUMAB [Suspect]
     Route: 050
     Dates: start: 20120416
  2. DIGITOXIN TAB [Concomitant]
  3. SIMVASTATIN [Concomitant]
  4. RANIBIZUMAB [Suspect]
     Indication: AGE-RELATED MACULAR DEGENERATION
     Route: 050
     Dates: start: 20120319
  5. RANIBIZUMAB [Suspect]
     Route: 050
     Dates: start: 20120514
  6. LOSARTAN POTASSIUM [Concomitant]
  7. MARCUMAR [Concomitant]
     Dates: end: 20120515
  8. METOPROLOL TARTRATE [Concomitant]

REACTIONS (4)
  - FALL [None]
  - CEREBROVASCULAR ACCIDENT [None]
  - GASTROINTESTINAL CARCINOMA [None]
  - INTESTINAL HAEMORRHAGE [None]
